FAERS Safety Report 10211266 (Version 3)
Quarter: 2014Q3

REPORT INFORMATION
  Report Type: Report from Study
  Country: JP (occurrence: JP)
  Receive Date: 20140602
  Receipt Date: 20140801
  Transmission Date: 20150326
  Serious: Yes (Hospitalization, Other)
  Sender: FDA-Public Use
  Company Number: PHHY2014JP066973

PATIENT
  Age: 90 Year
  Sex: Female

DRUGS (7)
  1. MEMANTINE HYDROCHLORIDE [Concomitant]
     Active Substance: MEMANTINE HYDROCHLORIDE
     Dosage: 20 MG, UNK
     Route: 048
     Dates: start: 20110706
  2. EXELON PATCH [Suspect]
     Active Substance: RIVASTIGMINE
     Indication: DEMENTIA ALZHEIMER^S TYPE
     Dosage: 1.9 MG, / 24 HOURS (4.5 MG DAILY)
     Route: 062
     Dates: start: 201111
  3. EXELON PATCH [Suspect]
     Active Substance: RIVASTIGMINE
     Dosage: 6.9 MG, / 24 HOURS (13.5 MG DAILY)
     Route: 062
  4. HEPARINOID [Concomitant]
     Active Substance: CHONDROITIN SULFATE (BOVINE)
     Dosage: UNK UKN, UNK
  5. NICERGOLINE [Concomitant]
     Active Substance: NICERGOLINE
     Dosage: UNK UKN, UNK
     Route: 048
     Dates: start: 20110706
  6. EXELON PATCH [Suspect]
     Active Substance: RIVASTIGMINE
     Dosage: 4.6 MG, / 24 HOURS (9 MG DAILY)
     Route: 062
  7. EXELON PATCH [Suspect]
     Active Substance: RIVASTIGMINE
     Dosage: 9.5 MG, / 24 HOURS (18 MG DAILY)
     Route: 062
     Dates: start: 201207

REACTIONS (2)
  - Hallucination, visual [Recovered/Resolved]
  - Thoracic vertebral fracture [Unknown]

NARRATIVE: CASE EVENT DATE: 201111
